FAERS Safety Report 19929500 (Version 1)
Quarter: 2021Q4

REPORT INFORMATION
  Report Type: Spontaneous
  Country: US (occurrence: US)
  Receive Date: 20211007
  Receipt Date: 20211007
  Transmission Date: 20220303
  Serious: No
  Sender: FDA-Public Use
  Company Number: US-PFIZER INC-2021542858

PATIENT
  Age: 62 Year
  Sex: Male
  Weight: 109.77 kg

DRUGS (1)
  1. SILDENAFIL CITRATE [Suspect]
     Active Substance: SILDENAFIL CITRATE
     Dosage: 20 MG, AS NEEDED (20 MG, 1 TABLET BY MOUTH AS NEEDED)
     Route: 048

REACTIONS (1)
  - Therapeutic product effect incomplete [Unknown]
